FAERS Safety Report 8875959 (Version 1)
Quarter: 2012Q4

REPORT INFORMATION
  Report Type: 
  Country: KR (occurrence: KR)
  Receive Date: 20121030
  Receipt Date: 20121030
  Transmission Date: 20130627
  Serious: Yes (Other)
  Sender: FDA-Public Use
  Company Number: PHHY2012KR095564

PATIENT
  Age: 9 Year
  Sex: Female

DRUGS (3)
  1. CARBOPLATIN [Suspect]
     Indication: CHEMOTHERAPY
     Dosage: 350 mg/m2, QD
  2. ETOPOSIDE [Suspect]
     Indication: CHEMOTHERAPY
     Dosage: 200 mg/m2, QD
  3. MELPHALAN [Suspect]
     Indication: CHEMOTHERAPY
     Dosage: 60 mg/m2, QD

REACTIONS (4)
  - Follicular thyroid cancer [Recovered/Resolved]
  - Goitre [Recovered/Resolved]
  - Thyroid neoplasm [Recovered/Resolved]
  - Thyroid mass [Recovered/Resolved]
